FAERS Safety Report 24096125 (Version 3)
Quarter: 2024Q3

REPORT INFORMATION
  Report Type: Spontaneous
  Country: CO (occurrence: CO)
  Receive Date: 20240716
  Receipt Date: 20240819
  Transmission Date: 20241017
  Serious: Yes (Life-Threatening)
  Sender: SANDOZ
  Company Number: CO-002147023-PHHY2018CO200874

PATIENT
  Age: 63 Year
  Sex: Male
  Weight: 85 kg

DRUGS (12)
  1. AMLODIPINE BESYLATE [Suspect]
     Active Substance: AMLODIPINE BESYLATE
     Indication: Product used for unknown indication
     Dosage: 5 MG
     Route: 065
  2. LOSARTAN POTASSIUM [Suspect]
     Active Substance: LOSARTAN POTASSIUM
     Indication: Product used for unknown indication
     Dosage: 50 MG
     Route: 065
  3. XOLAIR [Suspect]
     Active Substance: OMALIZUMAB
     Indication: Chronic spontaneous urticaria
     Dosage: 300 MG, QMO
     Route: 058
     Dates: start: 20181113, end: 201903
  4. XOLAIR [Suspect]
     Active Substance: OMALIZUMAB
     Dosage: 300 MG, QMO
     Route: 058
     Dates: start: 20181218
  5. XOLAIR [Suspect]
     Active Substance: OMALIZUMAB
     Dosage: 450 MG, QMO
     Route: 058
     Dates: start: 20190805
  6. XOLAIR [Suspect]
     Active Substance: OMALIZUMAB
     Dosage: 450 MG, QMO
     Route: 058
     Dates: start: 201903
  7. XOLAIR [Suspect]
     Active Substance: OMALIZUMAB
     Dosage: 450 MG, QMO
     Route: 058
  8. XOLAIR [Suspect]
     Active Substance: OMALIZUMAB
     Dosage: 450 MG, QMO (23 MAY)
     Route: 058
  9. XOLAIR [Suspect]
     Active Substance: OMALIZUMAB
     Dosage: 450 MG, QMO, (ONCE MONTHLY/ EACH MONTH) (20 JUN)
     Route: 058
  10. XOLAIR [Suspect]
     Active Substance: OMALIZUMAB
     Dosage: 450 MG (3 OF 150MG, EVERY 4 WEEKS)
     Route: 058
  11. BILASTINE [Concomitant]
     Active Substance: BILASTINE
     Indication: Urticaria
     Dosage: 20 MG, QD
     Route: 065
  12. HYDROCHLOROTHIAZIDE [Concomitant]
     Active Substance: HYDROCHLOROTHIAZIDE
     Indication: Product used for unknown indication
     Dosage: UNK
     Route: 065

REACTIONS (13)
  - Road traffic accident [Recovered/Resolved]
  - Gait inability [Recovered/Resolved]
  - Joint swelling [Recovering/Resolving]
  - Condition aggravated [Unknown]
  - Weight decreased [Unknown]
  - Chronic spontaneous urticaria [Unknown]
  - Mobility decreased [Unknown]
  - Hernia [Unknown]
  - Urticaria [Not Recovered/Not Resolved]
  - Pruritus [Recovering/Resolving]
  - Rash [Recovering/Resolving]
  - Off label use [Unknown]
  - Ankle fracture [Recovered/Resolved]

NARRATIVE: CASE EVENT DATE: 20181120
